FAERS Safety Report 13998540 (Version 2)
Quarter: 2017Q4

REPORT INFORMATION
  Report Type: Report from Study
  Country: US (occurrence: US)
  Receive Date: 20170921
  Receipt Date: 20171024
  Transmission Date: 20180321
  Serious: Yes (Hospitalization)
  Sender: FDA-Public Use
  Company Number: US-GILEAD-2017-0294376

PATIENT
  Age: 49 Year
  Sex: Male

DRUGS (2)
  1. AZTREONAM LYSINE [Suspect]
     Active Substance: AZTREONAM LYSINE
     Indication: CYSTIC FIBROSIS
     Dosage: 75 MG, UNK
     Route: 055
     Dates: start: 20161116
  2. AZTREONAM LYSINE [Suspect]
     Active Substance: AZTREONAM LYSINE
     Dosage: 75 MG/ML
     Route: 055
     Dates: start: 20161116

REACTIONS (6)
  - Blood sodium abnormal [Unknown]
  - Muscle spasms [Unknown]
  - Asthenia [Unknown]
  - Dyspnoea [Unknown]
  - Blood count abnormal [Unknown]
  - Regurgitation [Unknown]
